FAERS Safety Report 5732654-1 (Version None)
Quarter: 2008Q2

REPORT INFORMATION
  Report Type: 
  Country: None (occurrence: None)
  Receive Date: 20080507
  Receipt Date: 20080421
  Transmission Date: 20081010
  Serious: Yes (Death)
  Sender: FDA-Public Use
  Company Number: 2008S1000145

PATIENT
  Age: 60 Year
  Sex: Male

DRUGS (4)
  1. CUBICIN [Suspect]
     Indication: BETA HAEMOLYTIC STREPTOCOCCAL INFECTION
     Dosage: 6 MG/KG; Q24H; IV
     Route: 042
     Dates: start: 20080401, end: 20080417
  2. CUBICIN [Suspect]
     Indication: ENDOCARDITIS BACTERIAL
     Dosage: 6 MG/KG; Q24H; IV
     Route: 042
     Dates: start: 20080401, end: 20080417
  3. VANCOMYCIN [Suspect]
  4. VANCOMYCIN [Concomitant]

REACTIONS (1)
  - DEATH [None]
